FAERS Safety Report 5033275-9 (Version None)
Quarter: 2006Q2

REPORT INFORMATION
  Report Type: 
  Country: None (occurrence: None)
  Receive Date: 20060515
  Receipt Date: 20060209
  Transmission Date: 20061013
  Serious: Yes (Other)
  Sender: FDA-Public Use
  Company Number: S05-USA-05059-01

PATIENT
  Age: 84 Year
  Sex: Female
  Weight: 54.8852 kg

DRUGS (3)
  1. NAMENDA [Suspect]
     Indication: DEMENTIA
     Dosage: 10 MG BID PO
     Route: 048
     Dates: start: 20050201, end: 20051128
  2. NAMENDA [Suspect]
     Indication: DEMENTIA
     Dosage: 10 MG BID PO
     Route: 048
  3. RAZADYNE [Suspect]
     Dates: end: 20050101

REACTIONS (1)
  - LOWER GASTROINTESTINAL HAEMORRHAGE [None]
